FAERS Safety Report 20329454 (Version 4)
Quarter: 2022Q2

REPORT INFORMATION
  Report Type: Report from Study
  Country: DE (occurrence: DE)
  Receive Date: 20220112
  Receipt Date: 20220420
  Transmission Date: 20220721
  Serious: Yes (Hospitalization, Other)
  Sender: FDA-Public Use
  Company Number: DE-TAKEDA-2022TUS001776

PATIENT
  Age: 15 Year
  Sex: Male
  Weight: 70.748 kg

DRUGS (13)
  1. ANTIHEMOPHILIC FACTOR, PEGYLATED (MW 20000) HUMAN SEQUENCE RECOMBINANT [Suspect]
     Active Substance: ANTIHEMOPHILIC FACTOR, PEGYLATED (MW 20000) HUMAN SEQUENCE RECOMBINANT
     Indication: Haemophilia
     Dosage: 2000 INTERNATIONAL UNIT, Q72H
     Route: 042
     Dates: start: 20190731, end: 20201130
  2. ANTIHEMOPHILIC FACTOR, PEGYLATED (MW 20000) HUMAN SEQUENCE RECOMBINANT [Suspect]
     Active Substance: ANTIHEMOPHILIC FACTOR, PEGYLATED (MW 20000) HUMAN SEQUENCE RECOMBINANT
     Indication: Haemophilia
     Dosage: 2000 INTERNATIONAL UNIT, Q72H
     Route: 042
     Dates: start: 20190731, end: 20201130
  3. ANTIHEMOPHILIC FACTOR, PEGYLATED (MW 20000) HUMAN SEQUENCE RECOMBINANT [Suspect]
     Active Substance: ANTIHEMOPHILIC FACTOR, PEGYLATED (MW 20000) HUMAN SEQUENCE RECOMBINANT
     Indication: Haemophilia
     Dosage: 2000 INTERNATIONAL UNIT, Q72H
     Route: 042
     Dates: start: 20190731, end: 20201130
  4. ANTIHEMOPHILIC FACTOR, PEGYLATED (MW 20000) HUMAN SEQUENCE RECOMBINANT [Suspect]
     Active Substance: ANTIHEMOPHILIC FACTOR, PEGYLATED (MW 20000) HUMAN SEQUENCE RECOMBINANT
     Indication: Prophylaxis
  5. ANTIHEMOPHILIC FACTOR, PEGYLATED (MW 20000) HUMAN SEQUENCE RECOMBINANT [Suspect]
     Active Substance: ANTIHEMOPHILIC FACTOR, PEGYLATED (MW 20000) HUMAN SEQUENCE RECOMBINANT
     Indication: Prophylaxis
  6. ANTIHEMOPHILIC FACTOR, PEGYLATED (MW 20000) HUMAN SEQUENCE RECOMBINANT [Suspect]
     Active Substance: ANTIHEMOPHILIC FACTOR, PEGYLATED (MW 20000) HUMAN SEQUENCE RECOMBINANT
     Indication: Prophylaxis
  7. IBUPROFEN [Concomitant]
     Active Substance: IBUPROFEN
     Indication: Haemarthrosis
     Dosage: 500 MILLIGRAM
     Route: 048
     Dates: start: 20170329
  8. IBUPROFEN [Concomitant]
     Active Substance: IBUPROFEN
     Indication: Synovitis
     Dosage: 1000 MILLIGRAM, QD
     Route: 048
     Dates: start: 20170329, end: 20170421
  9. IBUPROFEN [Concomitant]
     Active Substance: IBUPROFEN
     Indication: Haemophilic arthropathy
     Dosage: 400 MILLIGRAM
     Route: 048
     Dates: start: 20210212, end: 20210214
  10. HEPATITIS B VIRUS VACCINE [Concomitant]
     Active Substance: HEPATITIS B VIRUS VACCINE
     Indication: Immunisation
     Dosage: UNK
     Route: 030
     Dates: start: 20170113, end: 20170113
  11. PANTOZOL [Concomitant]
     Active Substance: PANTOPRAZOLE SODIUM
     Indication: Gastric disorder
     Dosage: 20 MILLIGRAM, QD
     Route: 048
     Dates: start: 20170329, end: 20170421
  12. ACETAMINOPHEN [Concomitant]
     Active Substance: ACETAMINOPHEN
     Indication: Haemophilic arthropathy
     Dosage: 500 MILLIGRAM
     Route: 048
     Dates: start: 20210212, end: 20210214
  13. ISOTRETINOIN [Concomitant]
     Active Substance: ISOTRETINOIN
     Indication: Acne
     Dosage: UNK
     Route: 048
     Dates: start: 20210716, end: 20210816

REACTIONS (1)
  - Haemophilic arthropathy [Not Recovered/Not Resolved]

NARRATIVE: CASE EVENT DATE: 20201203
